FAERS Safety Report 4783901-4 (Version None)
Quarter: 2005Q3

REPORT INFORMATION
  Report Type: 
  Country: None (occurrence: None)
  Receive Date: 20050929
  Receipt Date: 20041130
  Transmission Date: 20060218
  Serious: Yes (Hospitalization)
  Sender: FDA-Public Use
  Company Number: US-MERCK-0412USA00166

PATIENT
  Age: 70 Year
  Sex: Female
  Weight: 93 kg

DRUGS (11)
  1. VIOXX [Suspect]
     Indication: OSTEOARTHRITIS
     Route: 048
     Dates: start: 20000207, end: 20000418
  2. VIOXX [Suspect]
     Route: 048
     Dates: start: 20010501, end: 20020305
  3. VIOXX [Suspect]
     Route: 048
     Dates: start: 19990809
  4. VIOXX [Suspect]
     Route: 048
     Dates: start: 20020306, end: 20030514
  5. VIOXX [Suspect]
     Route: 048
     Dates: start: 20030515, end: 20040930
  6. VIOXX [Suspect]
     Indication: TENDONITIS
     Route: 048
     Dates: start: 20000207, end: 20000418
  7. VIOXX [Suspect]
     Route: 048
     Dates: start: 20010501, end: 20020305
  8. VIOXX [Suspect]
     Route: 048
     Dates: start: 19990809
  9. VIOXX [Suspect]
     Route: 048
     Dates: start: 20020306, end: 20030514
  10. VIOXX [Suspect]
     Route: 048
     Dates: start: 20030515, end: 20040930
  11. CELEBREX [Suspect]
     Route: 048
     Dates: start: 20000418, end: 20010530

REACTIONS (31)
  - ABDOMINAL PAIN UPPER [None]
  - ANAEMIA [None]
  - ANGINA PECTORIS [None]
  - ARTHROPATHY [None]
  - ASTHENIA [None]
  - ATHEROSCLEROSIS [None]
  - CARDIAC FLUTTER [None]
  - CATARACT [None]
  - CHEST PAIN [None]
  - COLONIC POLYP [None]
  - CORONARY ARTERY ATHEROSCLEROSIS [None]
  - CORONARY ARTERY STENOSIS [None]
  - CYST [None]
  - DISTURBANCE IN ATTENTION [None]
  - DIZZINESS [None]
  - DYSPEPSIA [None]
  - EJECTION FRACTION DECREASED [None]
  - ERYTHEMA [None]
  - FATIGUE [None]
  - FEMUR FRACTURE [None]
  - GANGLION [None]
  - GASTROOESOPHAGEAL REFLUX DISEASE [None]
  - HYPERTENSION [None]
  - MUSCLE SPASMS [None]
  - MUSCLE SPASTICITY [None]
  - MYOCARDIAL INFARCTION [None]
  - MYOCARDIAL ISCHAEMIA [None]
  - OEDEMA PERIPHERAL [None]
  - ROTATOR CUFF SYNDROME [None]
  - STRESS [None]
  - VERTIGO [None]
